FAERS Safety Report 24090500 (Version 1)
Quarter: 2024Q3

REPORT INFORMATION
  Report Type: Spontaneous
  Country: US (occurrence: None)
  Receive Date: 20240712
  Receipt Date: 20240712
  Transmission Date: 20241017
  Serious: Yes (Disabling)
  Sender: Public
  Company Number: None

PATIENT
  Age: 74 Year
  Sex: Female
  Weight: 56.25 kg

DRUGS (12)
  1. REPATHA [Suspect]
     Active Substance: EVOLOCUMAB
     Indication: Blood cholesterol increased
     Dosage: OTHER FREQUENCY : EVERY OTHER WERK;?
     Route: 058
     Dates: start: 20230905, end: 20240408
  2. BUSPAR [Concomitant]
     Active Substance: BUSPIRONE HYDROCHLORIDE
  3. IPRATROPIUM [Concomitant]
     Active Substance: IPRATROPIUM
  4. REPATHA [Concomitant]
     Active Substance: EVOLOCUMAB
  5. ZETIA [Concomitant]
     Active Substance: EZETIMIBE
  6. BUDESONE [Concomitant]
  7. CALCIUM CITRATE\CHOLECALCIFEROL [Concomitant]
     Active Substance: CALCIUM CITRATE\CHOLECALCIFEROL
  8. ASPIRIN [Concomitant]
     Active Substance: ASPIRIN
  9. IBUPROFEN [Concomitant]
     Active Substance: IBUPROFEN
  10. IMODIUM [Concomitant]
     Active Substance: LOPERAMIDE HYDROCHLORIDE
  11. ZYRTEC [Concomitant]
     Active Substance: CETIRIZINE HYDROCHLORIDE
  12. flauticasine [Concomitant]

REACTIONS (4)
  - Diarrhoea [None]
  - Back pain [None]
  - Influenza [None]
  - Hypotension [None]

NARRATIVE: CASE EVENT DATE: 20240710
